FAERS Safety Report 4526264-1 (Version None)
Quarter: 2004Q4

REPORT INFORMATION
  Report Type: 
  Country: None (occurrence: None)
  Receive Date: 20041210
  Receipt Date: 20041129
  Transmission Date: 20050328
  Serious: Yes (Hospitalization)
  Sender: FDA-Public Use
  Company Number: 2004SE06623

PATIENT
  Age: 79 Year
  Sex: Male
  Weight: 80 kg

DRUGS (6)
  1. KENZEN [Suspect]
     Indication: HYPERTENSION
     Dosage: 4 MG QD; PO
     Route: 048
     Dates: end: 20041001
  2. KENZEN [Suspect]
     Indication: HYPERTENSION
     Dosage: 8 MG QD; PO
     Route: 048
     Dates: start: 20041001
  3. FONLIPOL [Concomitant]
     Indication: HYPERCHOLESTEROLAEMIA
     Dosage: 2 DP DAILY; PO
     Route: 048
     Dates: end: 20041021
  4. TRIAMTERENE AND HYDROCHLOROTHIAZIDE [Suspect]
     Indication: HYPERTENSION
     Dosage: 1 DF QD; PO
     Route: 048
     Dates: end: 20041021
  5. TOCOLPHA CAP [Suspect]
     Dosage: 500 MG QD; PO
     Route: 048
     Dates: end: 20041021
  6. MEDIATENSYL [Concomitant]

REACTIONS (5)
  - ANTIBODY TEST POSITIVE [None]
  - ELECTROPHORESIS PROTEIN ABNORMAL [None]
  - PEMPHIGOID [None]
  - PRURITUS [None]
  - WOUND SECRETION [None]
